FAERS Safety Report 19708065 (Version 1)
Quarter: 2021Q3

REPORT INFORMATION
  Report Type: Spontaneous
  Country: US (occurrence: US)
  Receive Date: 20210817
  Receipt Date: 20210817
  Transmission Date: 20211014
  Serious: Yes (Other)
  Sender: FDA-Public Use
  Company Number: None

PATIENT
  Age: 57 Year
  Sex: Female
  Weight: 103.5 kg

DRUGS (2)
  1. CASIRIVIMAB. [Suspect]
     Active Substance: CASIRIVIMAB
     Indication: COVID-19 TREATMENT
     Dosage: ?          OTHER FREQUENCY:ONE TIME;?
     Route: 041
     Dates: start: 20210813, end: 20210813
  2. IMDEVIMAB. [Suspect]
     Active Substance: IMDEVIMAB
     Dates: start: 20210813, end: 20210813

REACTIONS (7)
  - Presyncope [None]
  - Unresponsive to stimuli [None]
  - Confusional state [None]
  - Nausea [None]
  - Loss of consciousness [None]
  - Blood pressure decreased [None]
  - Pneumonia [None]

NARRATIVE: CASE EVENT DATE: 20210813
